FAERS Safety Report 10528480 (Version 10)
Quarter: 2015Q4

REPORT INFORMATION
  Report Type: Report from Study
  Country: CA (occurrence: CA)
  Receive Date: 20141020
  Receipt Date: 20151124
  Transmission Date: 20160304
  Serious: Yes (Death, Hospitalization, Other)
  Sender: FDA-Public Use
  Company Number: CA-INCYTE CORPORATION-2012IN001855

PATIENT
  Age: 83 Year
  Sex: Male

DRUGS (22)
  1. JAKAFI [Suspect]
     Active Substance: RUXOLITINIB
     Indication: MYELOFIBROSIS
     Dosage: 10 MG, BID
     Route: 048
     Dates: start: 20120510
  2. PRIMIDONE. [Concomitant]
     Active Substance: PRIMIDONE
     Dosage: UNK
  3. RANITIDINE [Concomitant]
     Active Substance: RANITIDINE\RANITIDINE HYDROCHLORIDE
     Dosage: UNK
  4. JAKAFI [Suspect]
     Active Substance: RUXOLITINIB
     Dosage: 1 DF - 2 DF, ONE PILL ONE DAY AND TWO PILLS THE NEXT, ALTERNATING
     Route: 048
     Dates: start: 20140530
  5. JAKAFI [Suspect]
     Active Substance: RUXOLITINIB
     Dosage: 10 MG, BID
     Route: 048
  6. JAKAFI [Suspect]
     Active Substance: RUXOLITINIB
     Dosage: 5 MG, BID FOR 10 DAYS
     Route: 048
  7. JAKAFI [Suspect]
     Active Substance: RUXOLITINIB
     Dosage: UNK
     Route: 048
     Dates: end: 201508
  8. JAKAFI [Suspect]
     Active Substance: RUXOLITINIB
     Dosage: 25 MG (10 MG QAM AND 15 MG QPM)
     Route: 048
  9. JAKAFI [Suspect]
     Active Substance: RUXOLITINIB
     Dosage: 10 MG, BID
     Route: 048
     Dates: start: 20140429
  10. LASIX [Concomitant]
     Active Substance: FUROSEMIDE
     Dosage: UNK
  11. JAKAFI [Suspect]
     Active Substance: RUXOLITINIB
     Dosage: 10 MG, BID
     Route: 048
  12. IRON [Concomitant]
     Active Substance: IRON
     Dosage: UNK
  13. ENSURE [Concomitant]
     Active Substance: AMINO ACIDS\DEXTROSE\ELECTROLYTES NOS\SOYBEAN OIL\VITAMINS
     Dosage: UNK
  14. WATER PILLS [Concomitant]
     Active Substance: UNSPECIFIED INGREDIENT
     Dosage: UNK
  15. TECTA [Concomitant]
     Active Substance: PANTOPRAZOLE MAGNESIUM
     Dosage: UNK
  16. JAKAFI [Suspect]
     Active Substance: RUXOLITINIB
     Dosage: 15 MG, BID
     Route: 048
  17. JAKAFI [Suspect]
     Active Substance: RUXOLITINIB
     Dosage: 10 MG BID
     Route: 048
     Dates: start: 201209
  18. ANDROGEL [Concomitant]
     Active Substance: TESTOSTERONE
     Dosage: UNK
  19. JAKAFI [Suspect]
     Active Substance: RUXOLITINIB
     Dosage: 10 MG, QD
     Route: 048
     Dates: start: 20120911
  20. JAKAFI [Suspect]
     Active Substance: RUXOLITINIB
     Dosage: 5 MG, BID
     Route: 048
  21. PROPRANOLOL [Concomitant]
     Active Substance: PROPRANOLOL\PROPRANOLOL HYDROCHLORIDE
     Dosage: UNK
  22. FUROSEMIDE. [Concomitant]
     Active Substance: FUROSEMIDE
     Dosage: UNK

REACTIONS (37)
  - Vomiting [Recovered/Resolved]
  - Nasopharyngitis [Unknown]
  - Gamma-glutamyltransferase increased [Not Recovered/Not Resolved]
  - Gastrointestinal disorder [Unknown]
  - White blood cell count decreased [Unknown]
  - Splenomegaly [Recovering/Resolving]
  - Peripheral swelling [Not Recovered/Not Resolved]
  - Nocardiosis [Recovering/Resolving]
  - Pruritus [Not Recovered/Not Resolved]
  - Dyspnoea [Not Recovered/Not Resolved]
  - Cough [Unknown]
  - Gait disturbance [Unknown]
  - Diarrhoea [Recovered/Resolved]
  - Erythema [Unknown]
  - Asthenia [Unknown]
  - Flatulence [Unknown]
  - Acute myeloid leukaemia [Unknown]
  - Anaemia [Not Recovered/Not Resolved]
  - Skin lesion [Not Recovered/Not Resolved]
  - White blood cell count increased [Unknown]
  - Fatigue [Unknown]
  - Immune system disorder [Unknown]
  - Influenza [Unknown]
  - Hypoaesthesia [Unknown]
  - Weight decreased [Recovering/Resolving]
  - Aphonia [Unknown]
  - Skin atrophy [Unknown]
  - Abdominal discomfort [Recovering/Resolving]
  - Platelet count decreased [Recovering/Resolving]
  - Death [Fatal]
  - Malaise [Unknown]
  - Dizziness [Unknown]
  - Joint swelling [Recovering/Resolving]
  - Skin discolouration [Unknown]
  - Tremor [Unknown]
  - Feeling abnormal [Unknown]
  - Contusion [Unknown]

NARRATIVE: CASE EVENT DATE: 20120809
